FAERS Safety Report 10302502 (Version 3)
Quarter: 2015Q1

REPORT INFORMATION
  Report Type: Report from Study
  Country: DE (occurrence: DE)
  Receive Date: 20140714
  Receipt Date: 20150220
  Transmission Date: 20150720
  Serious: Yes (Hospitalization)
  Sender: FDA-Public Use
  Company Number: DE-BRISTOL-MYERS SQUIBB COMPANY-21188107

PATIENT
  Age: 76 Year
  Sex: Male
  Weight: 79 kg

DRUGS (7)
  1. CETUXIMAB [Suspect]
     Active Substance: CETUXIMAB
     Indication: COLORECTAL CANCER METASTATIC
     Dosage: 400 MG/M2, UNK
     Route: 042
     Dates: start: 20140307
  2. FLUORO URACIL [Concomitant]
     Active Substance: FLUOROURACIL
     Indication: COLORECTAL CANCER METASTATIC
     Dosage: 2800 MG/M2, QWK
     Route: 042
     Dates: start: 20140307, end: 20140309
  3. DOXYCYCLINE. [Concomitant]
     Active Substance: DOXYCYCLINE
     Indication: DERMATITIS ACNEIFORM
  4. IRINOTECAN [Suspect]
     Active Substance: IRINOTECAN
     Indication: COLORECTAL CANCER METASTATIC
     Dosage: 180 MG/M2, QD
     Route: 042
     Dates: start: 20140307, end: 20140309
  5. NEBIVOLOL [Concomitant]
     Active Substance: NEBIVOLOL
     Indication: HYPERTENSION
     Route: 048
  6. RAMIPRIL. [Concomitant]
     Active Substance: RAMIPRIL
     Indication: HYPERTENSION
     Route: 048
  7. DOXYCYCLINE. [Concomitant]
     Active Substance: DOXYCYCLINE
     Indication: PROPHYLAXIS
     Dosage: 100 MG, QD
     Route: 048

REACTIONS (2)
  - Ileus paralytic [Recovered/Resolved]
  - Enteritis leukopenic [Recovered/Resolved]

NARRATIVE: CASE EVENT DATE: 20140527
